FAERS Safety Report 4936882-4 (Version None)
Quarter: 2006Q1

REPORT INFORMATION
  Report Type: 
  Country: None (occurrence: None)
  Receive Date: 20060302
  Receipt Date: 20060217
  Transmission Date: 20060701
  Serious: Yes (Life-Threatening, Hospitalization, Other)
  Sender: FDA-Public Use
  Company Number: CH200602000034

PATIENT
  Age: 63 Year
  Sex: Male

DRUGS (7)
  1. ZYPREXA [Suspect]
     Indication: DELUSIONAL DISORDER, UNSPECIFIED TYPE
     Dosage: 10 MG, DAILY (1/D), ORAL; 10 MG, DAILY (1/D), ORAL; 15 MG, DAILY (1/D), ORAL
     Route: 048
     Dates: start: 20051208, end: 20051212
  2. ZYPREXA [Suspect]
     Indication: DELUSIONAL DISORDER, UNSPECIFIED TYPE
     Dosage: 10 MG, DAILY (1/D), ORAL; 10 MG, DAILY (1/D), ORAL; 15 MG, DAILY (1/D), ORAL
     Route: 048
     Dates: start: 20051219, end: 20051220
  3. ZYPREXA [Suspect]
     Indication: DELUSIONAL DISORDER, UNSPECIFIED TYPE
     Dosage: 10 MG, DAILY (1/D), ORAL; 10 MG, DAILY (1/D), ORAL; 15 MG, DAILY (1/D), ORAL
     Route: 048
     Dates: start: 20051221, end: 20051222
  4. HALDOL SOLUTAB [Concomitant]
  5. DAPOTUM D FOR INJECTION (FLUPHENAZINE RD (BIPERIDEN HYDROCHLORIDE) [Concomitant]
  6. EPHYNAL [Concomitant]
  7. BETOLVEX (CYANOCOBALAMIN-TANNIN COMPLEX) [Concomitant]

REACTIONS (12)
  - AKATHISIA [None]
  - ASPARTATE AMINOTRANSFERASE INCREASED [None]
  - BLOOD CREATINE PHOSPHOKINASE INCREASED [None]
  - CONFUSIONAL STATE [None]
  - DISORIENTATION [None]
  - DRUG LEVEL INCREASED [None]
  - MUTISM [None]
  - NEUROLEPTIC MALIGNANT SYNDROME [None]
  - PARANOIA [None]
  - RESTLESSNESS [None]
  - STEREOTYPY [None]
  - URINARY TRACT INFECTION BACTERIAL [None]
